FAERS Safety Report 20638839 (Version 2)
Quarter: 2022Q1

REPORT INFORMATION
  Report Type: Report from Study
  Country: US (occurrence: US)
  Receive Date: 20220325
  Receipt Date: 20220331
  Transmission Date: 20220423
  Serious: Yes (Hospitalization)
  Sender: FDA-Public Use
  Company Number: US-JAZZ-2022-US-008249

PATIENT
  Age: 39 Year
  Sex: Female

DRUGS (5)
  1. XYREM [Suspect]
     Active Substance: SODIUM OXYBATE
     Indication: Narcolepsy
     Dosage: 2.25 GRAM, BID
     Route: 048
     Dates: start: 202202
  2. XYREM [Suspect]
     Active Substance: SODIUM OXYBATE
     Indication: Cataplexy
  3. XYREM [Suspect]
     Active Substance: SODIUM OXYBATE
     Indication: Somnolence
  4. THYROID T3 [Concomitant]
     Dosage: UNK
     Dates: start: 20200101
  5. PROGESTERONE [Concomitant]
     Active Substance: PROGESTERONE
     Indication: Product used for unknown indication
     Dosage: UNK
     Dates: start: 20220101

REACTIONS (14)
  - Hospitalisation [Unknown]
  - Nasal congestion [Unknown]
  - Swollen tongue [Unknown]
  - Dysgeusia [Unknown]
  - Hypoaesthesia [Unknown]
  - Tinnitus [Unknown]
  - Paraesthesia [Unknown]
  - Oral discomfort [Unknown]
  - Vertigo [Unknown]
  - Nausea [Unknown]
  - Burning sensation [Unknown]
  - Hypoaesthesia [Unknown]
  - Hypoaesthesia [Unknown]
  - Adverse reaction [Unknown]

NARRATIVE: CASE EVENT DATE: 20220312
